FAERS Safety Report 10186241 (Version 3)
Quarter: 2014Q2

REPORT INFORMATION
  Report Type: Spontaneous
  Country: JP (occurrence: JP)
  Receive Date: 20140521
  Receipt Date: 20140630
  Transmission Date: 20141212
  Serious: Yes (Hospitalization)
  Sender: FDA-Public Use
  Company Number: JP-GLAXOSMITHKLINE-B0994833A

PATIENT
  Sex: Female

DRUGS (4)
  1. LAMICTAL [Suspect]
     Indication: PRODUCT USED FOR UNKNOWN INDICATION
     Route: 048
     Dates: start: 20140514, end: 20140514
  2. SENIRAN [Concomitant]
     Route: 048
     Dates: start: 20140514, end: 20140514
  3. LORAMET [Concomitant]
     Route: 048
     Dates: start: 20140514, end: 20140514
  4. CYMBALTA [Concomitant]
     Route: 048
     Dates: start: 20140514, end: 20140514

REACTIONS (8)
  - Altered state of consciousness [Recovered/Resolved]
  - Suicidal ideation [Unknown]
  - Binocular eye movement disorder [Recovered/Resolved]
  - Gait apraxia [Recovered/Resolved]
  - Gait disturbance [Recovered/Resolved]
  - Somnolence [Recovered/Resolved]
  - Toxicity to various agents [Unknown]
  - Overdose [Unknown]
